FAERS Safety Report 4636406-5 (Version None)
Quarter: 2005Q2

REPORT INFORMATION
  Report Type: 
  Country: None (occurrence: None)
  Receive Date: 20050415
  Receipt Date: 20050314
  Transmission Date: 20051028
  Serious: Yes (Hospitalization)
  Sender: FDA-Public Use
  Company Number: FR-ROCHE-399004

PATIENT
  Age: 50 Year
  Sex: Male
  Weight: 110 kg

DRUGS (3)
  1. XENICAL [Suspect]
     Indication: OBESITY
     Dosage: REDUCED DOSAGE.
     Route: 048
  2. XENICAL [Suspect]
     Route: 048
     Dates: start: 19990815
  3. LIPANTHYL [Concomitant]
     Route: 048
     Dates: start: 19990914

REACTIONS (1)
  - HYPOKALAEMIA [None]
